FAERS Safety Report 11167855 (Version 1)
Quarter: 2015Q2

REPORT INFORMATION
  Report Type: Spontaneous
  Country: US (occurrence: None)
  Receive Date: 20150604
  Receipt Date: 20150604
  Transmission Date: 20150821
  Serious: Yes (Other)
  Sender: FDA-Public Use
  Company Number: None

PATIENT
  Age: 93 Year
  Sex: Male

DRUGS (6)
  1. FERROUS SULFATE [Concomitant]
     Active Substance: FERROUS SULFATE\FERROUS SULFATE, DRIED
  2. LASIX [Concomitant]
     Active Substance: FUROSEMIDE
  3. KCL [Concomitant]
     Active Substance: POTASSIUM CHLORIDE
  4. GLEEVEC [Suspect]
     Active Substance: IMATINIB MESYLATE
     Indication: GASTROINTESTINAL STROMAL TUMOUR
     Dosage: 1 TABLET  QD  ORAL
     Route: 048
     Dates: start: 20150420, end: 20150518
  5. OMEPRAZOLE. [Concomitant]
     Active Substance: OMEPRAZOLE
  6. SENNA [Concomitant]
     Active Substance: SENNA LEAF\SENNOSIDES\SENNOSIDES A AND B

REACTIONS (3)
  - Product physical issue [None]
  - Exfoliative rash [None]
  - Dysgeusia [None]

NARRATIVE: CASE EVENT DATE: 20150518
